FAERS Safety Report 7556857-9 (Version None)
Quarter: 2011Q2

REPORT INFORMATION
  Report Type: 
  Country: None (occurrence: None)
  Receive Date: 20110620
  Receipt Date: 20110607
  Transmission Date: 20111010
  Serious: Yes (Hospitalization)
  Sender: FDA-Public Use
  Company Number: JP-PFIZER INC-2011134680

PATIENT
  Age: 64 Year
  Sex: Male

DRUGS (2)
  1. DOXORUBICIN HYDROCHLORIDE [Suspect]
     Dosage: 30 MG/M2 X 1/4WEEK
     Route: 041
     Dates: start: 20110510
  2. DOXORUBICIN HYDROCHLORIDE [Suspect]
     Indication: ADULT T-CELL LYMPHOMA/LEUKAEMIA
     Dosage: 40 MG/M2 X 1/4WEEK
     Route: 041
     Dates: start: 20110413

REACTIONS (1)
  - CYTOMEGALOVIRUS INFECTION [None]
